FAERS Safety Report 21283031 (Version 1)
Quarter: 2022Q3

REPORT INFORMATION
  Report Type: Report from Study
  Country: CA (occurrence: CA)
  Receive Date: 20220901
  Receipt Date: 20220901
  Transmission Date: 20221026
  Serious: Yes (Hospitalization, Other)
  Sender: FDA-Public Use
  Company Number: CA-NOVARTISPH-NVSC2022CA193880

PATIENT
  Sex: Male
  Weight: 65 kg

DRUGS (1)
  1. PIRFENIDONE [Suspect]
     Active Substance: PIRFENIDONE
     Indication: Interstitial lung disease
     Dosage: UNK
     Route: 048

REACTIONS (3)
  - Bladder cancer [Unknown]
  - Post procedural pneumonia [Unknown]
  - Cough [Unknown]
